FAERS Safety Report 12601486 (Version 1)
Quarter: 2016Q3

REPORT INFORMATION
  Report Type: Spontaneous
  Country: US (occurrence: US)
  Receive Date: 20160728
  Receipt Date: 20160728
  Transmission Date: 20161109
  Serious: Yes (Hospitalization, Other)
  Sender: FDA-Public Use
  Company Number: US-ZYDUS-011635

PATIENT
  Age: 7 Month
  Sex: Female
  Weight: 6.1 kg

DRUGS (4)
  1. PROPRANOLOL [Suspect]
     Active Substance: PROPRANOLOL\PROPRANOLOL HYDROCHLORIDE
     Indication: HAEMANGIOMA OF SKIN
     Dosage: 20 MG/5ML
     Route: 048
  2. PROPRANOLOL [Suspect]
     Active Substance: PROPRANOLOL\PROPRANOLOL HYDROCHLORIDE
     Indication: HAEMANGIOMA OF SKIN
     Dosage: 20 MG/5ML
     Route: 048
  3. AMOXICILLIN/CLAVULANATE POTASSIUM [Concomitant]
     Indication: OTITIS MEDIA
     Dosage: AMOXICILLIN (600 MG)-CLAVULANATE POTASSIUM 42.9 MG/5 ML ORAL SUSPENSION (49 MG/KG
     Route: 048
  4. PROPRANOLOL [Suspect]
     Active Substance: PROPRANOLOL\PROPRANOLOL HYDROCHLORIDE
     Indication: HAEMANGIOMA OF SKIN
     Route: 048

REACTIONS (9)
  - Toxicity to various agents [Recovered/Resolved]
  - Hypotonia [Recovered/Resolved]
  - Sinus bradycardia [Recovered/Resolved]
  - Accidental overdose [Recovered/Resolved]
  - Depressed level of consciousness [Recovered/Resolved]
  - Cyanosis [Recovered/Resolved]
  - Lethargy [Recovered/Resolved]
  - Hypotension [Recovered/Resolved]
  - Tachypnoea [Recovered/Resolved]
